FAERS Safety Report 8168001-8 (Version None)
Quarter: 2012Q1

REPORT INFORMATION
  Report Type: 
  Country: None (occurrence: None)
  Receive Date: 20120227
  Receipt Date: 20120216
  Transmission Date: 20120608
  Serious: Yes (Life-Threatening, Hospitalization, Other)
  Sender: FDA-Public Use
  Company Number: GB-ROCHE-1023406

PATIENT
  Sex: Female
  Weight: 84.5 kg

DRUGS (8)
  1. RITUXAN [Suspect]
     Route: 042
  2. VINCRISTINE [Suspect]
     Indication: B-CELL LYMPHOMA
  3. ACETAMINOPHEN [Concomitant]
     Dates: start: 20100609
  4. CYCLOPHOSPHAMIDE [Suspect]
     Indication: B-CELL LYMPHOMA
  5. RITUXAN [Suspect]
     Indication: B-CELL LYMPHOMA
     Route: 042
     Dates: start: 20100520
  6. PREDNISOLONE [Suspect]
     Indication: B-CELL LYMPHOMA
  7. CHLORPHENIRAMINE MALEATE [Concomitant]
     Route: 042
     Dates: start: 20100520
  8. COTRIM [Concomitant]
     Dates: start: 20100609, end: 20120112

REACTIONS (8)
  - PYREXIA [None]
  - LYMPHOPENIA [None]
  - ANAEMIA [None]
  - NEUTROPENIC SEPSIS [None]
  - NEUTROPENIA [None]
  - MOUTH ULCERATION [None]
  - DIARRHOEA [None]
  - LETHARGY [None]
